FAERS Safety Report 16423904 (Version 1)
Quarter: 2019Q2

REPORT INFORMATION
  Report Type: Report from Study
  Country: US (occurrence: US)
  Receive Date: 20190613
  Receipt Date: 20190613
  Transmission Date: 20190711
  Serious: Yes (Disabling, Other)
  Sender: FDA-Public Use
  Company Number: US-SA-2019SA157248

PATIENT
  Age: 48 Year
  Sex: Male

DRUGS (1)
  1. INSULIN GLARGINE [Suspect]
     Active Substance: INSULIN GLARGINE
     Indication: DIABETES MELLITUS
     Dosage: 40 U, QD
     Route: 065
     Dates: start: 2015

REACTIONS (3)
  - Hypotension [Unknown]
  - Disability [Not Recovered/Not Resolved]
  - Brain injury [Unknown]
